FAERS Safety Report 18220121 (Version 1)
Quarter: 2020Q3

REPORT INFORMATION
  Report Type: Spontaneous
  Country: FR (occurrence: FR)
  Receive Date: 20200902
  Receipt Date: 20200902
  Transmission Date: 20201103
  Serious: Yes (Hospitalization)
  Sender: FDA-Public Use
  Company Number: FR-CADILA HEALTHCARE LIMITED-FR-ZYDUS-023960

PATIENT

DRUGS (6)
  1. CORTANCYL [Suspect]
     Active Substance: PREDNISONE
     Indication: RHEUMATOID ARTHRITIS
     Dosage: 10 MILLIGRAM,(INTERVAL :1 DAYS)
     Route: 048
  2. CLAMOXYL (FRANCE) [Suspect]
     Active Substance: AMOXICILLIN
     Indication: INFECTION
     Dosage: ()
     Route: 048
     Dates: start: 20180404, end: 20180412
  3. PREVISCAN (FRANCE) [Suspect]
     Active Substance: FLUINDIONE
     Indication: ATRIAL FIBRILLATION
     Dosage: 1.5 DOSAGE FORM,(INTERVAL :1 DAYS)
     Route: 048
  4. INSULINE GLARGINE ((BACTERIE/ESCHERICHIA COLI)) [Suspect]
     Active Substance: INSULIN GLARGINE
     Indication: INSULIN-REQUIRING TYPE 2 DIABETES MELLITUS
     Dosage: 26 INTERNATIONAL UNIT,(INTERVAL :1 DAYS)
     Route: 048
  5. METFORMIN [Suspect]
     Active Substance: METFORMIN HYDROCHLORIDE
     Indication: INSULIN-REQUIRING TYPE 2 DIABETES MELLITUS
     Dosage: 1500 MILLIGRAM,(INTERVAL :1 DAYS)
     Route: 048
  6. SOTALOL. [Suspect]
     Active Substance: SOTALOL
     Indication: ATRIAL FIBRILLATION
     Dosage: 80 MILLIGRAM,(INTERVAL :1 DAYS)
     Route: 048

REACTIONS (1)
  - Acquired haemophilia [Recovering/Resolving]

NARRATIVE: CASE EVENT DATE: 20180410
